FAERS Safety Report 12317518 (Version 5)
Quarter: 2018Q1

REPORT INFORMATION
  Report Type: Spontaneous
  Country: US (occurrence: US)
  Receive Date: 20160429
  Receipt Date: 20180129
  Transmission Date: 20180508
  Serious: No
  Sender: FDA-Public Use
  Company Number: US-PFIZER INC-2016230605

PATIENT
  Age: 57 Year
  Sex: Female

DRUGS (10)
  1. CEPHALEXINE [Concomitant]
     Active Substance: CEPHALEXIN
     Dosage: 500 MG, UNK
  2. METHOTREXATE. [Concomitant]
     Active Substance: METHOTREXATE
     Dosage: 2.5 MG, UNK
  3. PREDNISONE. [Concomitant]
     Active Substance: PREDNISONE
     Dosage: 5 MG, UNK
  4. XELJANZ [Suspect]
     Active Substance: TOFACITINIB CITRATE
     Indication: RHEUMATOID ARTHRITIS
     Dosage: 5 MG, TWICE A DAY
     Route: 048
     Dates: start: 20160226, end: 20160429
  5. XELJANZ [Suspect]
     Active Substance: TOFACITINIB CITRATE
     Indication: DRUG THERAPY
     Dosage: 5 MG, 1 TABLET TWICE A DAY AS DIRECTED
     Route: 048
     Dates: start: 201602
  6. XELJANZ [Suspect]
     Active Substance: TOFACITINIB CITRATE
     Dosage: 5 MG, 1 TABLET TWICE A DAY AS DIRECTED
     Route: 048
     Dates: start: 201602
  7. PREDNISONE. [Concomitant]
     Active Substance: PREDNISONE
     Dosage: 20 MG, UNK
  8. VITAMIN D [Concomitant]
     Active Substance: CHOLECALCIFEROL
     Dosage: 50000 IU, UNK
  9. NAPROXEN. [Concomitant]
     Active Substance: NAPROXEN
     Dosage: 500 MG, UNK
  10. XELJANZ [Suspect]
     Active Substance: TOFACITINIB CITRATE
     Dosage: 5 MG, 1 TABLET TWICE A DAY AS DIRECTED
     Route: 048
     Dates: start: 20160225

REACTIONS (8)
  - Peripheral swelling [Not Recovered/Not Resolved]
  - Erythema [Not Recovered/Not Resolved]
  - Nasopharyngitis [Not Recovered/Not Resolved]
  - Drug ineffective [Not Recovered/Not Resolved]
  - Blister [Not Recovered/Not Resolved]
  - Cough [Not Recovered/Not Resolved]
  - Foot fracture [Not Recovered/Not Resolved]
  - Bronchitis [Not Recovered/Not Resolved]

NARRATIVE: CASE EVENT DATE: 20160304
